FAERS Safety Report 9270043 (Version 15)
Quarter: 2016Q4

REPORT INFORMATION
  Report Type: Report from Study
  Country: US (occurrence: US)
  Receive Date: 20130503
  Receipt Date: 20161209
  Transmission Date: 20170207
  Serious: Yes (Hospitalization, Other)
  Sender: FDA-Public Use
  Company Number: US-SANOFI-AVENTIS-2013SA034556

PATIENT
  Age: 59 Year
  Sex: Female

DRUGS (9)
  1. AUBAGIO [Suspect]
     Active Substance: TERIFLUNOMIDE
     Indication: MULTIPLE SCLEROSIS
     Route: 048
     Dates: start: 20150108, end: 20150401
  2. AUBAGIO [Suspect]
     Active Substance: TERIFLUNOMIDE
     Indication: MULTIPLE SCLEROSIS
     Route: 048
     Dates: start: 2016
  3. AUBAGIO [Suspect]
     Active Substance: TERIFLUNOMIDE
     Indication: MULTIPLE SCLEROSIS
     Route: 048
     Dates: start: 20130126, end: 20130408
  4. AUBAGIO [Suspect]
     Active Substance: TERIFLUNOMIDE
     Indication: MULTIPLE SCLEROSIS
     Route: 048
     Dates: start: 20141231
  5. NEURONTIN [Concomitant]
     Active Substance: GABAPENTIN
     Indication: NEURALGIA
  6. AUBAGIO [Suspect]
     Active Substance: TERIFLUNOMIDE
     Indication: MULTIPLE SCLEROSIS
     Route: 048
     Dates: start: 20160929, end: 20161026
  7. REQUIP [Suspect]
     Active Substance: ROPINIROLE HYDROCHLORIDE
     Indication: RESTLESS LEGS SYNDROME
     Route: 065
  8. VITAMIN D [Concomitant]
     Active Substance: CHOLECALCIFEROL
     Dosage: MASSIVE DOSE
  9. AUBAGIO [Suspect]
     Active Substance: TERIFLUNOMIDE
     Indication: MULTIPLE SCLEROSIS
     Route: 048
     Dates: start: 20160803, end: 20160928

REACTIONS (29)
  - Malaise [Unknown]
  - Insomnia [Unknown]
  - Headache [Unknown]
  - Stress [Unknown]
  - Nausea [Unknown]
  - Gait disturbance [Not Recovered/Not Resolved]
  - Pneumonia [Unknown]
  - Restless legs syndrome [Unknown]
  - Muscular weakness [Unknown]
  - Impaired work ability [Unknown]
  - Diarrhoea [Recovered/Resolved]
  - Radial nerve injury [Unknown]
  - Product use issue [Unknown]
  - Hypertension [Unknown]
  - Hypothyroidism [Unknown]
  - Drug ineffective [Unknown]
  - Cognitive disorder [Recovered/Resolved]
  - Amnesia [Unknown]
  - Hiccups [Unknown]
  - Vitamin D decreased [Unknown]
  - Nervous system disorder [Not Recovered/Not Resolved]
  - Vitamin B complex deficiency [Unknown]
  - Back pain [Not Recovered/Not Resolved]
  - Loss of consciousness [Unknown]
  - Dizziness [Unknown]
  - Nerve injury [Unknown]
  - Migraine [Unknown]
  - Muscular weakness [Not Recovered/Not Resolved]
  - Nerve compression [Unknown]

NARRATIVE: CASE EVENT DATE: 201303
